FAERS Safety Report 5401496-9 (Version None)
Quarter: 2007Q3

REPORT INFORMATION
  Report Type: 
  Country: None (occurrence: None)
  Receive Date: 20070731
  Receipt Date: 20070109
  Transmission Date: 20080115
  Serious: No
  Sender: FDA-Public Use
  Company Number: A0634993A

PATIENT
  Age: 68 Year
  Sex: Female

DRUGS (1)
  1. DYAZIDE [Suspect]
     Indication: DRUG USE FOR UNKNOWN INDICATION
     Route: 048

REACTIONS (1)
  - MUSCLE SPASMS [None]
